FAERS Safety Report 9715377 (Version 3)
Quarter: 2013Q4

REPORT INFORMATION
  Report Type: Report from Study
  Country: RU (occurrence: RU)
  Receive Date: 20131127
  Receipt Date: 20131128
  Transmission Date: 20140711
  Serious: Yes (Other)
  Sender: FDA-Public Use
  Company Number: RU-MERCK-1212RUS009473

PATIENT
  Age: 52 Year
  Sex: Female
  Weight: 70 kg

DRUGS (5)
  1. BLINDED BOCEPREVIR [Suspect]
     Indication: CHRONIC HEPATITIS C
     Dosage: UNK
     Route: 048
     Dates: start: 20120523, end: 20130110
  2. PEGINTRON [Suspect]
     Indication: CHRONIC HEPATITIS C
     Dosage: 120 MCG/ 0.5ML, QW
     Route: 058
     Dates: start: 20120425, end: 20120605
  3. PEGINTRON [Suspect]
     Dosage: 120 MCG/ 0.4 ML, QW
     Route: 058
     Dates: start: 20120606, end: 20130110
  4. RIBAVIRIN [Suspect]
     Indication: CHRONIC HEPATITIS C
     Dosage: 1000 MG, BID
     Route: 048
     Dates: start: 20120425, end: 20120528
  5. RIBAVIRIN [Suspect]
     Dosage: 800 MG, BID
     Route: 048
     Dates: start: 20120529, end: 20130110

REACTIONS (2)
  - Neutropenia [Recovered/Resolved]
  - Neutropenia [Recovered/Resolved]
